FAERS Safety Report 25936539 (Version 1)
Quarter: 2025Q4

REPORT INFORMATION
  Report Type: Spontaneous
  Country: US (occurrence: US)
  Receive Date: 20251017
  Receipt Date: 20251017
  Transmission Date: 20260119
  Serious: Yes (Other)
  Sender: DECIPHERA PHARMACEUTICALS
  Company Number: US-DECIPHERA PHARMACEUTICALS LLC-2025US001303

PATIENT

DRUGS (1)
  1. ROMVIMZA [Suspect]
     Active Substance: VIMSELTINIB
     Indication: Product used for unknown indication
     Dosage: UNK

REACTIONS (1)
  - Liver function test increased [Unknown]
